FAERS Safety Report 9601131 (Version 2)
Quarter: 2013Q4

REPORT INFORMATION
  Report Type: Spontaneous
  Country: US (occurrence: US)
  Receive Date: 20131004
  Receipt Date: 20131004
  Transmission Date: 20140711
  Serious: No
  Sender: FDA-Public Use
  Company Number: US-AMGEN-USASP2013033731

PATIENT
  Age: 56 Year
  Sex: Female
  Weight: 115 kg

DRUGS (11)
  1. ENBREL [Suspect]
     Indication: RHEUMATOID ARTHRITIS
     Dosage: 50 MG/ML, QWK
     Route: 058
     Dates: start: 20110912
  2. GABAPENTIN [Concomitant]
     Dosage: 300 MG, UNK (30 CAPSULE FOR 30 DAYS)
     Route: 048
     Dates: start: 20111105
  3. MELOXICAM [Concomitant]
     Dosage: 15 MG, UNK (30 TABS FOR 30 DAYS)
     Route: 048
     Dates: start: 20111105
  4. CALCIUM [Concomitant]
     Dosage: 500 UNK, UNK
  5. FOLIC ACID [Concomitant]
     Dosage: 1 MG, QD (30 TABLETS FOR 30 DAYS)
     Route: 048
     Dates: start: 20111114
  6. INSULIN [Concomitant]
     Dosage: (25G X 1^ 1 ML, 50 EA)UNK
     Dates: start: 20111114
  7. MORPHINE SULFATE [Concomitant]
     Dosage: 30 MG, BID (ONE BID PRN ER) (60 TAB FOR 30 DAYS)
     Route: 048
     Dates: start: 20120522
  8. ORENCIA [Concomitant]
     Dosage: 125 MG/ML, QWK (FOR 30 DAYS)
     Route: 058
     Dates: start: 20130503
  9. OXYCODONE / ACETAMINOPHEN [Concomitant]
     Dosage: 10 MG, UNK (10 -325 MG) (60 TABS FOR 30 DAYS)
     Route: 048
     Dates: start: 20120130
  10. OXYCONTIN [Concomitant]
     Dosage: 20 MG, UNK ER (60 TB12 FOR 30 DAYS)
     Route: 048
     Dates: start: 20121112
  11. SIMVASTATIN [Concomitant]
     Indication: BLOOD CHOLESTEROL
     Dosage: 20 MG, QD (TAKE 1 TABLET BEDTIME 90 TAB) (30 TABLETS FOR 30 DAYS)
     Route: 048
     Dates: start: 20121015

REACTIONS (1)
  - Psoriasis [Not Recovered/Not Resolved]
